FAERS Safety Report 4939161-4 (Version None)
Quarter: 2006Q1

REPORT INFORMATION
  Report Type: 
  Country: None (occurrence: None)
  Receive Date: 20060309
  Receipt Date: 20060309
  Transmission Date: 20060701
  Serious: Yes (Life-Threatening)
  Sender: FDA-Public Use
  Company Number: None

PATIENT
  Age: 53 Year
  Sex: Female
  Weight: 57.6068 kg

DRUGS (2)
  1. BEVACIZUMAB [Suspect]
     Indication: RECTAL CANCER METASTATIC
  2. FOLFOX [Suspect]

REACTIONS (8)
  - CARDIAC FAILURE [None]
  - DYSPNOEA [None]
  - EJECTION FRACTION DECREASED [None]
  - HYPOXIA [None]
  - LUNG DISORDER [None]
  - OXYGEN SATURATION DECREASED [None]
  - PULMONARY OEDEMA [None]
  - VENTRICULAR HYPOKINESIA [None]
